FAERS Safety Report 13446919 (Version 1)
Quarter: 2017Q2

REPORT INFORMATION
  Report Type: Spontaneous
  Country: US (occurrence: US)
  Receive Date: 20170414
  Receipt Date: 20170414
  Transmission Date: 20170830
  Serious: Yes (Other)
  Sender: FDA-Public Use
  Company Number: None

PATIENT
  Age: 35 Year
  Sex: Female
  Weight: 126 kg

DRUGS (7)
  1. METAPROPOL [Concomitant]
  2. MULTIVITAMIN [Concomitant]
     Active Substance: VITAMINS
  3. ZOLOFT [Concomitant]
     Active Substance: SERTRALINE HYDROCHLORIDE
  4. LITHIUM. [Concomitant]
     Active Substance: LITHIUM
  5. TOPAMAX [Concomitant]
     Active Substance: TOPIRAMATE
  6. IRON SUPPLEMENT [Concomitant]
     Active Substance: IRON
  7. LATUDA [Suspect]
     Active Substance: LURASIDONE HYDROCHLORIDE
     Indication: BIPOLAR I DISORDER
     Dosage: ?          QUANTITY:.5 TABLET(S);?
     Route: 048
     Dates: start: 20160501, end: 20170406

REACTIONS (1)
  - Blood thyroid stimulating hormone decreased [None]

NARRATIVE: CASE EVENT DATE: 20170408
